FAERS Safety Report 20566723 (Version 1)
Quarter: 2022Q1

REPORT INFORMATION
  Report Type: Spontaneous
  Country: JP (occurrence: JP)
  Receive Date: 20220308
  Receipt Date: 20220308
  Transmission Date: 20220423
  Serious: Yes (Other)
  Sender: FDA-Public Use
  Company Number: JP-MLMSERVICE-20220216-3379453-1

PATIENT
  Age: 76 Year
  Sex: Male

DRUGS (8)
  1. LANSOPRAZOLE [Suspect]
     Active Substance: LANSOPRAZOLE
     Indication: Oesophageal ulcer haemorrhage
     Dosage: 15 MG, QD
     Route: 048
  2. LANSOPRAZOLE [Suspect]
     Active Substance: LANSOPRAZOLE
     Indication: Gastrooesophageal reflux disease
  3. ESOMEPRAZOLE MAGNESIUM [Suspect]
     Active Substance: ESOMEPRAZOLE MAGNESIUM
     Indication: Oesophageal ulcer haemorrhage
     Dosage: 20 MG, QD
     Route: 048
  4. ESOMEPRAZOLE MAGNESIUM [Suspect]
     Active Substance: ESOMEPRAZOLE MAGNESIUM
     Indication: Gastrooesophageal reflux disease
  5. RABEPRAZOLE [Suspect]
     Active Substance: RABEPRAZOLE
     Indication: Gastrooesophageal reflux disease
     Dosage: 10 MG, QD
     Route: 048
  6. RABEPRAZOLE [Suspect]
     Active Substance: RABEPRAZOLE
     Indication: Oesophageal ulcer haemorrhage
  7. VONOPRAZAN [Suspect]
     Active Substance: VONOPRAZAN
     Indication: Gastrooesophageal reflux disease
     Dosage: 10 MG, QD
     Route: 048
  8. VONOPRAZAN [Suspect]
     Active Substance: VONOPRAZAN
     Indication: Oesophageal ulcer haemorrhage
     Dosage: 20 MG, QD
     Route: 048

REACTIONS (3)
  - Duodenal polyp [Recovered/Resolved]
  - Metaplasia [Recovered/Resolved]
  - Hypergastrinaemia [Recovered/Resolved]
